FAERS Safety Report 12933090 (Version 2)
Quarter: 2016Q4

REPORT INFORMATION
  Report Type: Spontaneous
  Country: IT (occurrence: IT)
  Receive Date: 20161111
  Receipt Date: 20161116
  Transmission Date: 20170207
  Serious: Yes (Other)
  Sender: FDA-Public Use
  Company Number: PHHY2016IT152878

PATIENT
  Age: 73 Year
  Sex: Female
  Weight: 60 kg

DRUGS (8)
  1. PERJETA [Concomitant]
     Active Substance: PERTUZUMAB
     Indication: METASTASES TO CENTRAL NERVOUS SYSTEM
     Dosage: 420 MG, UNK
     Route: 042
     Dates: start: 20160718, end: 20160905
  2. OMEPRAZOLE. [Concomitant]
     Active Substance: OMEPRAZOLE
     Indication: PRODUCT USED FOR UNKNOWN INDICATION
     Dosage: 40 MG, UNK
     Route: 065
  3. PROPANOLOL [Concomitant]
     Active Substance: PROPRANOLOL HYDROCHLORIDE
     Indication: PRODUCT USED FOR UNKNOWN INDICATION
     Route: 065
  4. PACLITAXEL. [Suspect]
     Active Substance: PACLITAXEL
     Indication: METASTASES TO CENTRAL NERVOUS SYSTEM
     Dosage: 60 MG, CYCLIC
     Route: 042
     Dates: start: 20160718
  5. NEBIVOLOL. [Concomitant]
     Active Substance: NEBIVOLOL
     Indication: PRODUCT USED FOR UNKNOWN INDICATION
     Route: 065
  6. HERCEPTIN [Concomitant]
     Active Substance: TRASTUZUMAB
     Indication: METASTASES TO CENTRAL NERVOUS SYSTEM
     Dosage: 600 MG, UNK
     Route: 058
     Dates: start: 20160718, end: 20160905
  7. LAEVOLAC EPS [Concomitant]
     Indication: PRODUCT USED FOR UNKNOWN INDICATION
     Route: 065
  8. LASIX [Concomitant]
     Active Substance: FUROSEMIDE
     Indication: PRODUCT USED FOR UNKNOWN INDICATION
     Route: 065

REACTIONS (2)
  - Vertigo [Unknown]
  - Fall [Unknown]

NARRATIVE: CASE EVENT DATE: 20161001
